FAERS Safety Report 4903679-0 (Version None)
Quarter: 2006Q1

REPORT INFORMATION
  Report Type: 
  Country: None (occurrence: None)
  Receive Date: 20060208
  Receipt Date: 20060126
  Transmission Date: 20060701
  Serious: Yes (Hospitalization)
  Sender: FDA-Public Use
  Company Number: ES-AVENTIS-200610493EU

PATIENT
  Age: 74 Year
  Sex: Male

DRUGS (1)
  1. RILUZOLE [Suspect]
     Indication: AMYOTROPHIC LATERAL SCLEROSIS
     Route: 048

REACTIONS (20)
  - ASTHENIA [None]
  - BLOOD BICARBONATE INCREASED [None]
  - BLOOD FIBRINOGEN INCREASED [None]
  - BLOOD IMMUNOGLOBULIN A INCREASED [None]
  - BLOOD IMMUNOGLOBULIN E INCREASED [None]
  - BLOOD IMMUNOGLOBULIN G INCREASED [None]
  - BLOOD PH INCREASED [None]
  - COUGH [None]
  - DRUG TOXICITY [None]
  - DYSPNOEA [None]
  - HYPERHIDROSIS [None]
  - HYPOVENTILATION [None]
  - INTERSTITIAL LUNG DISEASE [None]
  - LUNG INFILTRATION [None]
  - PO2 DECREASED [None]
  - PRODUCTIVE COUGH [None]
  - PULMONARY TOXICITY [None]
  - RED BLOOD CELL SEDIMENTATION RATE INCREASED [None]
  - RESPIRATORY RATE INCREASED [None]
  - TACHYPNOEA [None]
